FAERS Safety Report 7892580-9 (Version None)
Quarter: 2011Q4

REPORT INFORMATION
  Report Type: 
  Country: None (occurrence: None)
  Receive Date: 20111104
  Receipt Date: 20111003
  Transmission Date: 20120403
  Serious: Yes (Other)
  Sender: FDA-Public Use
  Company Number: US-UCBSA-044024

PATIENT
  Age: 65 Year
  Sex: Female
  Weight: 94.8 kg

DRUGS (1)
  1. CIMZIA [Suspect]
     Indication: RHEUMATOID ARTHRITIS
     Dosage: STARTED 2-3 YEARS AGO
     Route: 058

REACTIONS (3)
  - PNEUMONIA [None]
  - CYSTOCELE [None]
  - BRONCHITIS [None]
